FAERS Safety Report 21574928 (Version 1)
Quarter: 2022Q4

REPORT INFORMATION
  Report Type: Spontaneous
  Country: CN (occurrence: CN)
  Receive Date: 20221110
  Receipt Date: 20221110
  Transmission Date: 20230113
  Serious: Yes (Other)
  Sender: FDA-Public Use
  Company Number: None

PATIENT
  Age: 52 Year
  Sex: Male
  Weight: 64 kg

DRUGS (1)
  1. MANNITOL [Suspect]
     Active Substance: MANNITOL
     Indication: Glaucoma
     Dosage: 250 ML ONCE DAILY
     Route: 041
     Dates: start: 20221029, end: 20221029

REACTIONS (2)
  - Infusion site erythema [Recovering/Resolving]
  - Infusion site swelling [Recovering/Resolving]

NARRATIVE: CASE EVENT DATE: 20221029
